FAERS Safety Report 21681135 (Version 1)
Quarter: 2022Q4

REPORT INFORMATION
  Report Type: Report from Study
  Country: US (occurrence: US)
  Receive Date: 20221205
  Receipt Date: 20221205
  Transmission Date: 20230113
  Serious: Yes (Other)
  Sender: FDA-Public Use
  Company Number: US-KOREA IPSEN Pharma-2022-32723

PATIENT
  Age: 52 Year
  Sex: Male

DRUGS (1)
  1. SOMATULINE DEPOT [Suspect]
     Active Substance: LANREOTIDE ACETATE
     Indication: Acromegaly
     Dosage: 60 MG EVERY 28 DAYS, BUTTOCKS DEEP SQ
     Route: 058
     Dates: start: 2014

REACTIONS (5)
  - Loss of consciousness [Recovering/Resolving]
  - Dehydration [Not Recovered/Not Resolved]
  - Hyperhidrosis [Recovering/Resolving]
  - Blood glucose increased [Not Recovered/Not Resolved]
  - Dizziness [Recovering/Resolving]

NARRATIVE: CASE EVENT DATE: 20221001
